FAERS Safety Report 5680518-4 (Version None)
Quarter: 2008Q1

REPORT INFORMATION
  Report Type: 
  Country: None (occurrence: None)
  Receive Date: 20080326
  Receipt Date: 20080317
  Transmission Date: 20080703
  Serious: Yes (Hospitalization)
  Sender: FDA-Public Use
  Company Number: CA-AMGEN-US270021

PATIENT
  Sex: Female

DRUGS (11)
  1. PANITUMUMAB [Suspect]
     Indication: COLORECTAL CANCER
     Route: 042
     Dates: start: 20070707, end: 20080116
  2. OXALIPLATIN [Concomitant]
     Route: 065
  3. FLUOROURACIL [Concomitant]
     Route: 065
  4. LEUCOVORIN CALCIUM [Concomitant]
     Route: 065
  5. ZOFRAN [Concomitant]
     Route: 065
  6. MAXERAN [Concomitant]
     Route: 065
  7. PROCHLORPERAZINE [Concomitant]
     Route: 065
  8. IMODIUM [Concomitant]
     Route: 065
  9. GABAPENTIN [Concomitant]
     Route: 065
  10. SEROQUEL [Concomitant]
     Route: 065
  11. DILAUDID [Concomitant]
     Route: 042

REACTIONS (1)
  - DYSPNOEA [None]
